FAERS Safety Report 6486086-1 (Version None)
Quarter: 2009Q4

REPORT INFORMATION
  Report Type: 
  Country: None (occurrence: None)
  Receive Date: 20091207
  Receipt Date: 20091130
  Transmission Date: 20100525
  Serious: Yes (Life-Threatening, Hospitalization, Disabling)
  Sender: FDA-Public Use
  Company Number: 2009011525

PATIENT
  Age: 39 Year
  Sex: Male
  Weight: 99.7913 kg

DRUGS (2)
  1. NUVIGIL [Suspect]
     Dosage: 150 MG (150 MG, 1 IN 1 D), ORAL
     Route: 048
     Dates: start: 20090401, end: 20091001
  2. ABILIFY [Suspect]
     Indication: DEPRESSION
     Dosage: 10 MG 910 MG, 1 IN 1 D)
     Dates: start: 20090101, end: 20091001

REACTIONS (1)
  - PRIAPISM [None]
